FAERS Safety Report 6038181-9 (Version None)
Quarter: 2009Q1

REPORT INFORMATION
  Report Type: 
  Country: None (occurrence: None)
  Receive Date: 20090115
  Receipt Date: 20090105
  Transmission Date: 20090719
  Serious: Yes (Other)
  Sender: FDA-Public Use
  Company Number: PHHY2009FR00688

PATIENT
  Sex: Female

DRUGS (6)
  1. TRILEPTAL [Suspect]
     Route: 064
  2. CLONAZEPAM [Concomitant]
     Route: 064
  3. ASPEGIC 325 [Concomitant]
     Route: 064
  4. AVLOCARDYL [Concomitant]
  5. SPECIAFOLDINE [Concomitant]
     Route: 064
  6. VITAMIN K [Concomitant]

REACTIONS (2)
  - DRUG EXPOSURE DURING PREGNANCY [None]
  - PREMATURE BABY [None]
